FAERS Safety Report 25505294 (Version 1)
Quarter: 2025Q3

REPORT INFORMATION
  Report Type: Spontaneous
  Country: US (occurrence: US)
  Receive Date: 20250702
  Receipt Date: 20250702
  Transmission Date: 20251021
  Serious: Yes (Other)
  Sender: TAKEDA
  Company Number: US-TAKEDA-2025TUS058091

PATIENT
  Sex: Female

DRUGS (3)
  1. HUMAN IMMUNOGLOBULIN G [Suspect]
     Active Substance: HUMAN IMMUNOGLOBULIN G
     Indication: Gestational alloimmune liver disease
     Dosage: UNK UNK, 1/WEEK
  2. PREDNISONE [Concomitant]
     Active Substance: PREDNISONE
     Dosage: 60 MILLIGRAM, QD
  3. PREDNISONE [Concomitant]
     Active Substance: PREDNISONE

REACTIONS (2)
  - Drug-induced liver injury [Unknown]
  - Exposure during pregnancy [Recovered/Resolved]
